FAERS Safety Report 8241825-4 (Version None)
Quarter: 2012Q1

REPORT INFORMATION
  Report Type: 
  Country: None (occurrence: None)
  Receive Date: 20120328
  Receipt Date: 20120319
  Transmission Date: 20120608
  Serious: Yes (Hospitalization, Other)
  Sender: FDA-Public Use
  Company Number: US-ASTRAZENECA-2011SE63472

PATIENT
  Age: 73 Year
  Sex: Female
  Weight: 98.9 kg

DRUGS (6)
  1. EFFEXOR [Concomitant]
  2. NEXIUM [Suspect]
     Route: 048
  3. BENICAR [Concomitant]
     Route: 048
  4. PREVACID [Concomitant]
  5. LEXAPRO [Concomitant]
  6. SYNTHROID [Concomitant]

REACTIONS (22)
  - OROPHARYNGEAL DISCOMFORT [None]
  - ALOPECIA [None]
  - NAUSEA [None]
  - VOMITING [None]
  - OESOPHAGEAL STENOSIS [None]
  - GASTROENTERITIS [None]
  - HYPERTENSION [None]
  - ABDOMINAL PAIN [None]
  - OESOPHAGEAL ACHALASIA [None]
  - FATIGUE [None]
  - HIATUS HERNIA [None]
  - FOREIGN BODY [None]
  - GASTRITIS [None]
  - POLYP [None]
  - URINARY TRACT INFECTION [None]
  - GASTROOESOPHAGEAL REFLUX DISEASE [None]
  - INTESTINAL OBSTRUCTION [None]
  - DIVERTICULUM [None]
  - DYSPHAGIA [None]
  - OESOPHAGEAL DISORDER [None]
  - THYROID DISORDER [None]
  - MALAISE [None]
